FAERS Safety Report 4911935-5 (Version None)
Quarter: 2006Q1

REPORT INFORMATION
  Report Type: 
  Country: None (occurrence: None)
  Receive Date: 20060213
  Receipt Date: 20060213
  Transmission Date: 20060701
  Serious: Yes (Hospitalization)
  Sender: FDA-Public Use
  Company Number: None

PATIENT
  Age: 48 Year
  Sex: Male
  Weight: 147 kg

DRUGS (2)
  1. FLURAZEPAM [Suspect]
     Indication: SLEEP DISORDER
     Dosage: 30 MG   DAILY   PO
     Route: 048
     Dates: start: 20050401, end: 20060209
  2. PIROXICAM [Suspect]
     Indication: GOUT
     Dosage: 20 MG    DAILY   PO
     Route: 048
     Dates: start: 20050401, end: 20060210

REACTIONS (3)
  - JAUNDICE CHOLESTATIC [None]
  - LIVER FUNCTION TEST ABNORMAL [None]
  - RENAL FAILURE ACUTE [None]
